FAERS Safety Report 9197828 (Version 7)
Quarter: 2019Q3

REPORT INFORMATION
  Report Type: Report from Study
  Country: PL (occurrence: PL)
  Receive Date: 20130328
  Receipt Date: 20190808
  Transmission Date: 20191005
  Serious: Yes (Death, Hospitalization, Other)
  Sender: FDA-Public Use
  Company Number: PL-ACTELION-A-CH2013-81171

PATIENT
  Age: 3 Year
  Sex: Female
  Weight: 12 kg

DRUGS (10)
  1. SPIRONOLACTONE. [Concomitant]
     Active Substance: SPIRONOLACTONE
     Dosage: UNK
     Dates: start: 201201
  2. ACENOCOUMAROL [Concomitant]
     Active Substance: ACENOCOUMAROL
     Dosage: UNK
     Dates: start: 201201
  3. DIGOXIN. [Concomitant]
     Active Substance: DIGOXIN
     Dosage: UNK
     Dates: start: 20121004
  4. TRACLEER [Suspect]
     Active Substance: BOSENTAN
     Dosage: 7 MG, BID
     Route: 048
     Dates: start: 20110805, end: 20110908
  5. TRACLEER [Suspect]
     Active Substance: BOSENTAN
     Dosage: 14 MG, QD
     Route: 048
  6. VENTAVIS [Suspect]
     Active Substance: ILOPROST
     Indication: PULMONARY ARTERIAL HYPERTENSION
     Dosage: UNK
     Route: 055
     Dates: start: 20121030, end: 20121105
  7. SILDENAFIL. [Concomitant]
     Active Substance: SILDENAFIL
     Dosage: UNK
     Dates: start: 201111
  8. HYDROCHLOROTHIAZIDE. [Concomitant]
     Active Substance: HYDROCHLOROTHIAZIDE
     Dosage: UNK
     Dates: start: 201201, end: 201212
  9. FUROSEMIDE. [Concomitant]
     Active Substance: FUROSEMIDE
     Dosage: UNK
     Dates: start: 201201
  10. TRACLEER [Suspect]
     Active Substance: BOSENTAN
     Indication: PULMONARY ARTERIAL HYPERTENSION
     Dosage: 32.5 MG, BID
     Route: 048
     Dates: start: 20110909

REACTIONS (19)
  - Decreased appetite [Unknown]
  - Chest pain [Unknown]
  - Hepatomegaly [Unknown]
  - Disease progression [Fatal]
  - N-terminal prohormone brain natriuretic peptide increased [Unknown]
  - Aortic anastomosis [Unknown]
  - Cardiac failure [Unknown]
  - Abdominal pain upper [Unknown]
  - Irritability [Unknown]
  - Dyspnoea [Unknown]
  - Cyanosis [Unknown]
  - Low cardiac output syndrome [Unknown]
  - Pulmonary arterial hypertension [Fatal]
  - Ventricular arrhythmia [Unknown]
  - General physical health deterioration [Unknown]
  - Tachypnoea [Unknown]
  - Drug ineffective [Unknown]
  - Viral upper respiratory tract infection [Unknown]
  - Oxygen saturation decreased [Unknown]

NARRATIVE: CASE EVENT DATE: 201207
